FAERS Safety Report 16677777 (Version 1)
Quarter: 2019Q3

REPORT INFORMATION
  Report Type: Spontaneous
  Country: US (occurrence: US)
  Receive Date: 20190807
  Receipt Date: 20190807
  Transmission Date: 20191004
  Serious: No
  Sender: FDA-Public Use
  Company Number: US-AAA-201900246

PATIENT
  Age: 40 Year
  Sex: Female
  Weight: 100.2 kg

DRUGS (2)
  1. PROTONIX [Concomitant]
     Active Substance: PANTOPRAZOLE SODIUM
     Indication: GASTRINOMA
     Route: 048
  2. DOTATATE [Suspect]
     Active Substance: OXODOTREOTIDE
     Indication: POSITRON EMISSION TOMOGRAM
     Route: 042
     Dates: start: 20190528, end: 20190528

REACTIONS (3)
  - Flushing [Recovered/Resolved]
  - Hypertension [Recovered/Resolved]
  - Tachycardia [Recovered/Resolved]

NARRATIVE: CASE EVENT DATE: 20190529
